FAERS Safety Report 8859062 (Version 1)
Quarter: 2012Q4

REPORT INFORMATION
  Report Type: 
  Country: US (occurrence: US)
  Receive Date: 20121024
  Receipt Date: 20121024
  Transmission Date: 20130627
  Serious: No
  Sender: FDA-Public Use
  Company Number: US-B.I. PHARMACEUTICALS,INC./RIDGEFIELD-2012-BP-25648BP

PATIENT
  Age: 59 None
  Sex: Female
  Weight: 79 kg

DRUGS (6)
  1. SPIRIVA [Suspect]
     Indication: CHRONIC OBSTRUCTIVE PULMONARY DISEASE
     Dosage: 18 mcg
     Route: 055
     Dates: start: 2008
  2. SIMVASTATIN [Concomitant]
     Indication: BLOOD CHOLESTEROL INCREASED
     Dosage: 40 mg
     Route: 048
     Dates: start: 2007
  3. ADVAIR [Concomitant]
     Indication: CHRONIC OBSTRUCTIVE PULMONARY DISEASE
     Route: 055
     Dates: start: 2008
  4. FERREROS SULFATE [Concomitant]
     Indication: IRON DEFICIENCY
     Route: 048
     Dates: start: 2007
  5. LOSARTAN [Concomitant]
     Indication: BLOOD POTASSIUM DECREASED
     Dosage: 300 mg
     Route: 048
     Dates: start: 1996
  6. NARCO [Concomitant]
     Indication: BACK PAIN
     Route: 048
     Dates: start: 2006

REACTIONS (4)
  - Type 2 diabetes mellitus [Not Recovered/Not Resolved]
  - Product quality issue [Recovered/Resolved]
  - Product quality issue [Recovered/Resolved]
  - Product quality issue [Recovered/Resolved]
